FAERS Safety Report 20687191 (Version 1)
Quarter: 2022Q2

REPORT INFORMATION
  Report Type: Report from Study
  Country: AR (occurrence: AR)
  Receive Date: 20220407
  Receipt Date: 20220407
  Transmission Date: 20220721
  Serious: Yes (Other)
  Sender: FDA-Public Use
  Company Number: AR-ABBVIE-21K-007-4052389-00

PATIENT
  Sex: Female

DRUGS (1)
  1. HUMIRA [Suspect]
     Active Substance: ADALIMUMAB
     Indication: Rheumatoid arthritis
     Route: 058
     Dates: start: 20160811, end: 2020

REACTIONS (4)
  - Anaemia [Recovering/Resolving]
  - Maternal exposure during pregnancy [Unknown]
  - Normal newborn [Unknown]
  - Hypertension [Unknown]
